FAERS Safety Report 4795415-6 (Version None)
Quarter: 2005Q4

REPORT INFORMATION
  Report Type: 
  Country: None (occurrence: None)
  Receive Date: 20051007
  Receipt Date: 20050926
  Transmission Date: 20060501
  Serious: Yes (Other)
  Sender: FDA-Public Use
  Company Number: B0395317A

PATIENT
  Age: 62 Year
  Sex: Male

DRUGS (2)
  1. LITHIUM SALT (GENERIC) (LITHIUM SALT) [Suspect]
  2. ANTIHYPERTENSIVE [Concomitant]

REACTIONS (9)
  - AGITATION [None]
  - CARDIAC OPERATION [None]
  - CEREBROVASCULAR ACCIDENT [None]
  - DELIRIUM [None]
  - DEPRESSED LEVEL OF CONSCIOUSNESS [None]
  - HYPOGLYCAEMIA [None]
  - HYPOTENSION [None]
  - POST PROCEDURAL COMPLICATION [None]
  - THERAPEUTIC AGENT TOXICITY [None]
